FAERS Safety Report 7100059-7 (Version None)
Quarter: 2010Q4

REPORT INFORMATION
  Report Type: 
  Country: None (occurrence: None)
  Receive Date: 20101112
  Receipt Date: 20101104
  Transmission Date: 20110411
  Serious: Yes (Other)
  Sender: FDA-Public Use
  Company Number: GB-PFIZER INC-GB-WYE-G00746707

PATIENT
  Age: 27 Year
  Sex: Male

DRUGS (8)
  1. IBUPROFEN [Suspect]
     Indication: PRODUCT USED FOR UNKNOWN INDICATION
     Dosage: UNK
     Dates: start: 20020820, end: 20020820
  2. LOFEPRAMINE [Suspect]
     Dosage: UNK
  3. ALCOHOL [Suspect]
     Dosage: UNK
     Dates: start: 20020801
  4. SEROXAT ^CIBA-GEIGY^ [Suspect]
     Indication: PHOBIA
     Dosage: 20 MG, 1X/DAY
     Dates: start: 19990901, end: 20021201
  5. METHYLENEDIOXYMETHAMPHETAMINE [Suspect]
     Dosage: UNK
     Dates: start: 20020801
  6. COCAINE [Suspect]
     Dosage: UNK
     Dates: start: 20020801
  7. CODEINE [Suspect]
     Dosage: UNK
     Dates: start: 20020820
  8. NUROFEN [Suspect]
     Dosage: UNK

REACTIONS (5)
  - CONSTIPATION [None]
  - DRY MOUTH [None]
  - INTENTIONAL OVERDOSE [None]
  - SUICIDE ATTEMPT [None]
  - VISION BLURRED [None]
